FAERS Safety Report 7111174-6 (Version None)
Quarter: 2010Q4

REPORT INFORMATION
  Report Type: 
  Country: None (occurrence: None)
  Receive Date: 20101118
  Receipt Date: 20101006
  Transmission Date: 20110411
  Serious: Yes (Death, Other)
  Sender: FDA-Public Use
  Company Number: US-BAXTER-2009BH018373

PATIENT
  Age: 52 Year
  Sex: Male

DRUGS (56)
  1. HEPARIN SODIUM INJECTION [Suspect]
     Indication: CATHETERISATION CARDIAC
     Route: 065
     Dates: start: 20080111, end: 20080111
  2. HEPARIN SODIUM INJECTION [Suspect]
     Indication: CHEST PAIN
     Route: 065
     Dates: start: 20080111, end: 20080111
  3. HEPARIN SODIUM INJECTION [Suspect]
     Indication: DYSPNOEA
     Route: 065
     Dates: start: 20080111, end: 20080111
  4. HEPARIN SODIUM INJECTION [Suspect]
     Route: 042
     Dates: start: 20080110, end: 20080110
  5. HEPARIN SODIUM INJECTION [Suspect]
     Route: 042
     Dates: start: 20080110, end: 20080110
  6. HEPARIN SODIUM INJECTION [Suspect]
     Route: 042
     Dates: start: 20080110, end: 20080110
  7. HEPARIN SODIUM INJECTION [Suspect]
     Route: 065
     Dates: start: 20080110, end: 20080110
  8. HEPARIN SODIUM INJECTION [Suspect]
     Route: 065
     Dates: start: 20080110, end: 20080110
  9. HEPARIN SODIUM INJECTION [Suspect]
     Route: 065
     Dates: start: 20080110, end: 20080110
  10. HEPARIN SODIUM INJECTION [Suspect]
     Route: 042
     Dates: start: 20080415, end: 20080415
  11. HEPARIN SODIUM INJECTION [Suspect]
     Route: 042
     Dates: start: 20080415, end: 20080415
  12. HEPARIN SODIUM INJECTION [Suspect]
     Route: 042
     Dates: start: 20080415, end: 20080415
  13. HEPARIN SODIUM INJECTION [Suspect]
     Route: 065
     Dates: start: 20080520, end: 20080520
  14. HEPARIN SODIUM INJECTION [Suspect]
     Route: 065
     Dates: start: 20080520, end: 20080520
  15. HEPARIN SODIUM INJECTION [Suspect]
     Route: 065
     Dates: start: 20080520, end: 20080520
  16. HEPARIN SODIUM INJECTION [Suspect]
     Route: 065
     Dates: start: 20080107, end: 20080107
  17. HEPARIN SODIUM INJECTION [Suspect]
     Route: 065
     Dates: start: 20080107, end: 20080107
  18. HEPARIN SODIUM INJECTION [Suspect]
     Route: 065
     Dates: start: 20080107, end: 20080107
  19. HEPARIN SODIUM INJECTION [Suspect]
     Route: 042
     Dates: start: 20080425, end: 20080425
  20. HEPARIN SODIUM INJECTION [Suspect]
     Route: 042
     Dates: start: 20080425, end: 20080425
  21. HEPARIN SODIUM INJECTION [Suspect]
     Route: 042
     Dates: start: 20080425, end: 20080425
  22. HEPARIN SODIUM 5,000 UNITS IN DEXTROSE 5% [Suspect]
     Indication: CHEST PAIN
     Route: 041
     Dates: start: 20080521, end: 20080523
  23. HEPARIN SODIUM 5,000 UNITS IN DEXTROSE 5% [Suspect]
     Route: 041
     Dates: start: 20080425
  24. HEPARIN SODIUM 1,000 UNITS AND SODIUM CHLORIDE 0.9% [Suspect]
     Indication: PRODUCT USED FOR UNKNOWN INDICATION
     Route: 042
     Dates: start: 20080415
  25. DURAGESIC-100 [Concomitant]
     Indication: PRODUCT USED FOR UNKNOWN INDICATION
     Route: 065
  26. OXYCONTIN [Concomitant]
     Indication: PRODUCT USED FOR UNKNOWN INDICATION
     Route: 065
  27. NORVASK [Concomitant]
     Indication: PRODUCT USED FOR UNKNOWN INDICATION
     Route: 065
  28. LOPRESSOR [Concomitant]
     Indication: PRODUCT USED FOR UNKNOWN INDICATION
     Route: 065
  29. NEURONTIN [Concomitant]
     Indication: PRODUCT USED FOR UNKNOWN INDICATION
     Route: 065
  30. PANTOPRAZOLE [Concomitant]
     Indication: PRODUCT USED FOR UNKNOWN INDICATION
     Route: 065
  31. CARDIZEM CD [Concomitant]
     Indication: PRODUCT USED FOR UNKNOWN INDICATION
     Route: 065
  32. LASIX [Concomitant]
     Indication: PRODUCT USED FOR UNKNOWN INDICATION
     Route: 065
  33. POTASSIUM CHLORIDE [Concomitant]
     Indication: PRODUCT USED FOR UNKNOWN INDICATION
     Route: 065
  34. ZOLOFT [Concomitant]
     Indication: PRODUCT USED FOR UNKNOWN INDICATION
     Route: 065
  35. ACCUPRIL [Concomitant]
     Indication: PRODUCT USED FOR UNKNOWN INDICATION
     Route: 065
  36. WARFARIN SODIUM [Concomitant]
     Indication: PRODUCT USED FOR UNKNOWN INDICATION
     Route: 065
  37. DIGOXIN [Concomitant]
     Indication: PRODUCT USED FOR UNKNOWN INDICATION
     Route: 065
  38. PLAVIX [Concomitant]
     Indication: PRODUCT USED FOR UNKNOWN INDICATION
     Route: 065
  39. SPIRONOLACTONE [Concomitant]
     Indication: PRODUCT USED FOR UNKNOWN INDICATION
     Route: 048
  40. BUMETANIDE [Concomitant]
     Indication: PRODUCT USED FOR UNKNOWN INDICATION
     Route: 048
  41. OXYCODONE HCL [Concomitant]
     Indication: PRODUCT USED FOR UNKNOWN INDICATION
     Route: 048
  42. DOCUSATE [Concomitant]
     Indication: PRODUCT USED FOR UNKNOWN INDICATION
     Route: 048
  43. LORAZEPAM [Concomitant]
     Indication: PRODUCT USED FOR UNKNOWN INDICATION
     Route: 048
  44. TIZANIDINE HCL [Concomitant]
     Indication: MUSCLE SPASMS
     Route: 048
  45. MAGNESIUM HYDROXIDE [Concomitant]
     Indication: DYSPEPSIA
     Route: 048
  46. ZOLPIDEM [Concomitant]
     Indication: INSOMNIA
     Route: 048
  47. ZOFRAN [Concomitant]
     Indication: NAUSEA
     Route: 042
  48. DILAUDID [Concomitant]
     Indication: PRODUCT USED FOR UNKNOWN INDICATION
     Route: 048
  49. NITRO-SPRAY [Concomitant]
     Indication: PAIN
     Route: 060
  50. METHYLPREDNISOLONE [Concomitant]
     Indication: PRODUCT USED FOR UNKNOWN INDICATION
     Route: 042
  51. MORPHINE [Concomitant]
     Indication: PAIN
     Route: 042
  52. SODIUM CHLORIDE [Concomitant]
     Indication: PRODUCT USED FOR UNKNOWN INDICATION
     Route: 042
  53. CARVEDILOL [Concomitant]
     Indication: PRODUCT USED FOR UNKNOWN INDICATION
     Route: 048
  54. CLINDAMYCIN [Concomitant]
     Indication: PRODUCT USED FOR UNKNOWN INDICATION
     Route: 048
  55. ULTRAM [Concomitant]
     Indication: PAIN
     Route: 048
  56. VANCOMYCIN [Concomitant]
     Indication: PRODUCT USED FOR UNKNOWN INDICATION
     Route: 042

REACTIONS (23)
  - ATRIAL FIBRILLATION [None]
  - BLOOD CULTURE POSITIVE [None]
  - BRONCHITIS [None]
  - CARDIAC ARREST [None]
  - CARDIAC FAILURE CONGESTIVE [None]
  - CHEST PAIN [None]
  - DYSPNOEA [None]
  - ENTEROCOCCUS TEST POSITIVE [None]
  - HAEMOPTYSIS [None]
  - HIATUS HERNIA [None]
  - HYPERSENSITIVITY [None]
  - HYPERTENSION [None]
  - HYPOTENSION [None]
  - INJECTION SITE EXTRAVASATION [None]
  - LEUKOCYTOSIS [None]
  - OESOPHAGITIS [None]
  - PAIN [None]
  - PAIN IN EXTREMITY [None]
  - PULMONARY EMBOLISM [None]
  - PULMONARY HYPERTENSION [None]
  - THROMBOSIS [None]
  - TRANSAMINASES INCREASED [None]
  - WEIGHT INCREASED [None]
